FAERS Safety Report 4752094-1 (Version None)
Quarter: 2005Q3

REPORT INFORMATION
  Report Type: 
  Country: None (occurrence: None)
  Receive Date: 20050825
  Receipt Date: 20050818
  Transmission Date: 20060218
  Serious: Yes (Death, Life-Threatening)
  Sender: FDA-Public Use
  Company Number: FR-BOEHRINGER INGELHEIM PHARMACEUTICALS, INC.-2005-FF-00579FF

PATIENT
  Age: 77 Year
  Sex: Female

DRUGS (7)
  1. MICARDIS [Suspect]
     Route: 048
  2. URISPAS [Concomitant]
     Dosage: TWO TABLETS DAILY
     Route: 048
  3. DIFFU K [Concomitant]
     Route: 048
  4. FLECAINIDE ACETATE [Concomitant]
     Route: 048
  5. NEXIUM [Concomitant]
     Route: 048
  6. PHYSIOTENS [Concomitant]
     Route: 048
  7. CHINA GREEN TEA [Concomitant]
     Route: 048

REACTIONS (8)
  - BLOOD BILIRUBIN INCREASED [None]
  - DEATH [None]
  - GASTROINTESTINAL HAEMORRHAGE [None]
  - HEPATIC ENZYME INCREASED [None]
  - HEPATIC FAILURE [None]
  - HIATUS HERNIA [None]
  - PORTAL HYPERTENSION [None]
  - RENAL FAILURE [None]
